FAERS Safety Report 20713321 (Version 1)
Quarter: 2022Q2

REPORT INFORMATION
  Report Type: Spontaneous
  Country: BR (occurrence: BR)
  Receive Date: 20220415
  Receipt Date: 20220415
  Transmission Date: 20220721
  Serious: Yes (Hospitalization, Other)
  Sender: FDA-Public Use
  Company Number: BR-AMNEAL PHARMACEUTICALS-2022-AMRX-00948

PATIENT
  Age: 60 Year
  Sex: Male

DRUGS (2)
  1. DOXORUBICIN HYDROCHLORIDE [Suspect]
     Active Substance: DOXORUBICIN HYDROCHLORIDE
     Indication: Retroperitoneum cyst
     Dosage: 25 MILLIGRAM/SQ. METER ON DAYS 1?3 FOR FOUR CYCLES
     Route: 065
     Dates: start: 202007
  2. IFOSFAMIDE [Suspect]
     Active Substance: IFOSFAMIDE
     Indication: Retroperitoneum cyst
     Dosage: 3 GRAM PER SQUARE METRE DAYS 1?3 FOR FOUR CYCLES
     Route: 065
     Dates: start: 202007

REACTIONS (2)
  - Haematotoxicity [Recovering/Resolving]
  - Nephropathy toxic [Recovering/Resolving]
